FAERS Safety Report 25382121 (Version 5)
Quarter: 2025Q3

REPORT INFORMATION
  Report Type: Report from Study
  Country: CA (occurrence: CA)
  Receive Date: 20250531
  Receipt Date: 20250918
  Transmission Date: 20251020
  Serious: Yes (Other)
  Sender: CELLTRION
  Company Number: CA-CELLTRION INC.-2024CA032170

PATIENT

DRUGS (4)
  1. USTEKINUMAB [Suspect]
     Active Substance: USTEKINUMAB
     Indication: Crohn^s disease
     Dosage: 90 MG EVERY 4 WEEKS/ 90.0 MILLIGRAM 1 EVERY 4 WEEKS
     Route: 058
     Dates: start: 20250115
  2. USTEKINUMAB [Suspect]
     Active Substance: USTEKINUMAB
     Dosage: 90 MG EVERY 4 WEEKS/ 90.0 MILLIGRAM 1 EVERY 4 WEEKS
     Route: 058
     Dates: start: 20250212
  3. USTEKINUMAB [Suspect]
     Active Substance: USTEKINUMAB
     Dosage: 90 MG EVERY 4 WEEK(S) (START DATE: 05 JUL)
     Route: 058
  4. USTEKINUMAB [Suspect]
     Active Substance: USTEKINUMAB
     Route: 058

REACTIONS (4)
  - Pain in extremity [Unknown]
  - Muscular weakness [Unknown]
  - Pneumonia [Unknown]
  - Off label use [Unknown]

NARRATIVE: CASE EVENT DATE: 20241211
